FAERS Safety Report 6553033-3 (Version None)
Quarter: 2010Q1

REPORT INFORMATION
  Report Type: 
  Country: None (occurrence: None)
  Receive Date: 20100127
  Receipt Date: 20100119
  Transmission Date: 20100710
  Serious: Yes (Other)
  Sender: FDA-Public Use
  Company Number: US-RB-001490-10

PATIENT
  Age: 82 Year
  Sex: Male

DRUGS (3)
  1. MUCINEX DM [Suspect]
     Dosage: PATIENT TOOK ONE DOSE OF THE PRODUCT, ONE TABLET,.
     Route: 048
     Dates: start: 20090901
  2. COUMADIN [Concomitant]
  3. NALAPRIL 20 MG OD [Concomitant]
     Indication: BLOOD PRESSURE

REACTIONS (1)
  - LOSS OF CONSCIOUSNESS [None]
